FAERS Safety Report 9994807 (Version 1)
Quarter: 2014Q1

REPORT INFORMATION
  Report Type: Spontaneous
  Country: CN (occurrence: CN)
  Receive Date: 20140311
  Receipt Date: 20140311
  Transmission Date: 20141002
  Serious: Yes (Death, Hospitalization)
  Sender: FDA-Public Use
  Company Number: CN-JNJFOC-20140301639

PATIENT
  Age: 35 Year
  Sex: Male

DRUGS (8)
  1. INVEGA SUSTENNA [Suspect]
     Indication: SCHIZOPHRENIA
     Route: 030
     Dates: start: 2013
  2. INVEGA SUSTENNA [Suspect]
     Indication: SCHIZOPHRENIA
     Dosage: ON DAY 8
     Route: 030
     Dates: start: 201305
  3. INVEGA SUSTENNA [Suspect]
     Indication: SCHIZOPHRENIA
     Dosage: ON JANUARY 24/27, 2014
     Route: 030
     Dates: start: 20140124
  4. INVEGA SUSTENNA [Suspect]
     Indication: SCHIZOPHRENIA
     Route: 030
     Dates: start: 201304
  5. SERTRALINE [Concomitant]
     Indication: ANXIETY
     Route: 065
     Dates: start: 2013, end: 2013
  6. SERTRALINE [Concomitant]
     Indication: NERVOUSNESS
     Route: 065
     Dates: start: 2013, end: 2013
  7. VENLAFAXINE [Concomitant]
     Route: 065
  8. VENLAFAXINE [Concomitant]
     Dosage: HALF A MONTH LATER, IN COMBINATION WITH THE THIRD DOSE OF PALIPERIDONE PALMITATE
     Route: 065

REACTIONS (6)
  - Chest discomfort [Fatal]
  - Nervousness [Recovered/Resolved]
  - Muscle rigidity [Unknown]
  - Anxiety [Recovered/Resolved]
  - Blood pressure increased [Unknown]
  - Injection site pain [Unknown]
